FAERS Safety Report 8267586-0 (Version None)
Quarter: 2012Q2

REPORT INFORMATION
  Report Type: 
  Country: None (occurrence: None)
  Receive Date: 20120409
  Receipt Date: 20120329
  Transmission Date: 20120825
  Serious: Yes (Other)
  Sender: FDA-Public Use
  Company Number: US-ELI_LILLY_AND_COMPANY-US201201009042

PATIENT
  Sex: Male
  Weight: 104 kg

DRUGS (4)
  1. ZYPREXA RELPREVV [Suspect]
     Dosage: 405 DF, MONTHLY (1/M)
     Route: 030
     Dates: end: 20120217
  2. ZYPREXA RELPREVV [Suspect]
     Indication: SCHIZOPHRENIA
     Dosage: 405 DF, MONTHLY (1/M)
     Route: 030
     Dates: start: 20110602, end: 20120217
  3. LEXAPRO [Concomitant]
     Dosage: 10 MG, UNK
     Route: 048
  4. CELEXA [Concomitant]
     Dosage: UNK

REACTIONS (8)
  - BLOOD LACTATE DEHYDROGENASE INCREASED [None]
  - BLOOD TRIGLYCERIDES INCREASED [None]
  - MONOCYTE COUNT INCREASED [None]
  - LYMPHOCYTE COUNT DECREASED [None]
  - TOTAL CHOLESTEROL/HDL RATIO DECREASED [None]
  - BLOOD GLUCOSE INCREASED [None]
  - ASPARTATE AMINOTRANSFERASE INCREASED [None]
  - BLOOD CHOLESTEROL INCREASED [None]
